FAERS Safety Report 10640924 (Version 1)
Quarter: 2014Q4

REPORT INFORMATION
  Report Type: Spontaneous
  Country: US (occurrence: US)
  Receive Date: 20141209
  Receipt Date: 20141209
  Transmission Date: 20150529
  Serious: Yes (Hospitalization, Other)
  Sender: FDA-Public Use
  Company Number: US-ABBVIE-14P-163-1316127-00

PATIENT

DRUGS (2)
  1. TESTIM [Suspect]
     Active Substance: TESTOSTERONE
     Indication: BLOOD TESTOSTERONE DECREASED
     Route: 065
     Dates: start: 201107, end: 2012
  2. ANDROGEL [Suspect]
     Active Substance: TESTOSTERONE
     Indication: BLOOD TESTOSTERONE DECREASED
     Route: 065
     Dates: start: 201102, end: 2012

REACTIONS (11)
  - Cardiovascular disorder [Unknown]
  - Anhedonia [Unknown]
  - Loss of employment [Unknown]
  - Anxiety [Unknown]
  - Injury [Unknown]
  - Acute myocardial infarction [Unknown]
  - Fear [Unknown]
  - Impaired work ability [Unknown]
  - Pain [Unknown]
  - Social problem [Unknown]
  - Economic problem [Unknown]

NARRATIVE: CASE EVENT DATE: 201112
